FAERS Safety Report 7002616-5 (Version None)
Quarter: 2010Q3

REPORT INFORMATION
  Report Type: 
  Country: None (occurrence: None)
  Receive Date: 20100920
  Receipt Date: 20091103
  Transmission Date: 20110219
  Serious: Yes (Hospitalization)
  Sender: FDA-Public Use
  Company Number: US-ASTRAZENECA-2007UW19283

PATIENT
  Age: 51 Year
  Sex: Female
  Weight: 155.1 kg

DRUGS (14)
  1. SEROQUEL [Suspect]
     Indication: BIPOLAR DISORDER
     Dosage: 25 - 100MG
     Route: 048
     Dates: start: 20010101
  2. SEROQUEL [Suspect]
     Indication: DEPRESSION
     Dosage: 25 - 100MG
     Route: 048
     Dates: start: 20010101
  3. SEROQUEL [Suspect]
     Dosage: 25-100 MG/DAY
     Route: 048
     Dates: start: 20030813
  4. SEROQUEL [Suspect]
     Dosage: 25-100 MG/DAY
     Route: 048
     Dates: start: 20030813
  5. PROZAC [Concomitant]
     Dosage: 20 MG THREE TABLET DAILY, 40 MG DAILY, 60 MG DAILY
     Route: 048
  6. AMBIEN [Concomitant]
     Indication: SLEEP DISORDER
     Route: 048
  7. WELLBUTRIN SR [Concomitant]
     Route: 048
  8. LANTUS U-100 INSULIN [Concomitant]
     Route: 065
  9. CYMBALTA [Concomitant]
     Route: 065
  10. METFORMIN [Concomitant]
     Route: 048
  11. LAMICTAL [Concomitant]
     Route: 048
  12. RISPERDAL [Concomitant]
  13. ZYPREXA [Concomitant]
  14. SYMBYAX [Concomitant]

REACTIONS (11)
  - ARTHRALGIA [None]
  - BLOOD CHOLESTEROL INCREASED [None]
  - BLOOD GLUCOSE INCREASED [None]
  - CRYING [None]
  - DEPRESSED MOOD [None]
  - DIABETES MELLITUS [None]
  - HYPERLIPIDAEMIA [None]
  - OBESITY [None]
  - SOMNOLENCE [None]
  - STRESS [None]
  - TYPE 2 DIABETES MELLITUS [None]
